FAERS Safety Report 6743682-1 (Version None)
Quarter: 2010Q2

REPORT INFORMATION
  Report Type: 
  Country: None (occurrence: None)
  Receive Date: 20100525
  Receipt Date: 20100519
  Transmission Date: 20101027
  Serious: Yes (Hospitalization)
  Sender: FDA-Public Use
  Company Number: 20100012USST

PATIENT
  Age: 41 Year
  Sex: Male

DRUGS (3)
  1. LEVOCARNITINE [Suspect]
     Indication: MITOCHONDRIAL MYOPATHY ACQUIRED
     Dosage: PO
     Route: 048
     Dates: start: 20100113
  2. MNESIS (IDEBENONE) [Suspect]
     Dates: start: 20100113
  3. LEVOTHYROXINE SODIUM [Concomitant]

REACTIONS (3)
  - DYSPNOEA [None]
  - MIDDLE INSOMNIA [None]
  - POOR QUALITY SLEEP [None]
